FAERS Safety Report 8899988 (Version 1)
Quarter: 2012Q4

REPORT INFORMATION
  Report Type: 
  Country: US (occurrence: US)
  Receive Date: 20121108
  Receipt Date: 20121108
  Transmission Date: 20130627
  Serious: No
  Sender: FDA-Public Use
  Company Number: US-AMGEN-USASP2012037095

PATIENT
  Sex: Female
  Weight: 67.12 kg

DRUGS (12)
  1. ENBREL [Suspect]
     Indication: PRODUCT USED FOR UNKNOWN INDICATION
     Dosage: 50 mg, qwk
     Route: 058
  2. MULTIVITAMIN                       /00097801/ [Concomitant]
  3. TRAMADOL HCL [Concomitant]
     Dosage: 50 mg, UNK
  4. PREDNISONE [Concomitant]
     Dosage: 1 mg, UNK
  5. CIMETIDINE [Concomitant]
     Dosage: 200 mg, UNK
  6. FOSAMAX [Concomitant]
     Dosage: 10 mg, UNK
  7. VITAMIN D /00107901/ [Concomitant]
     Dosage: 1000 IU, UNK
  8. NIFEDIPINE [Concomitant]
     Dosage: 30 mg, UNK
  9. RHINOCORT                          /00212602/ [Concomitant]
  10. CALCIUM [Concomitant]
  11. LYSINE [Concomitant]
     Dosage: 500 mg, UNK
  12. METHOCARBAMOL [Concomitant]
     Dosage: 500 mg, UNK

REACTIONS (1)
  - Pain in extremity [Unknown]
